FAERS Safety Report 17949387 (Version 2)
Quarter: 2022Q4

REPORT INFORMATION
  Report Type: Spontaneous
  Country: GB (occurrence: GB)
  Receive Date: 20200625
  Receipt Date: 20221012
  Transmission Date: 20230113
  Serious: Yes (Other)
  Sender: FDA-Public Use
  Company Number: GB-NOVARTISPH-NVSC2020GB171728

PATIENT
  Age: 21 Year
  Sex: Female

DRUGS (5)
  1. ONDANSETRON [Suspect]
     Active Substance: ONDANSETRON
     Indication: Chemical submission
     Dosage: UNK
     Route: 065
  2. PROPOFOL [Suspect]
     Active Substance: PROPOFOL
     Indication: Chemical submission
     Dosage: UNK
     Route: 065
  3. MIDAZOLAM [Suspect]
     Active Substance: MIDAZOLAM
     Indication: Chemical submission
     Dosage: UNK
     Route: 065
  4. CYCLIZINE LACTATE [Suspect]
     Active Substance: CYCLIZINE LACTATE
     Indication: Chemical submission
     Dosage: UNK
     Route: 065
     Dates: start: 20181214
  5. CYCLIZINE LACTATE [Suspect]
     Active Substance: CYCLIZINE LACTATE
     Dosage: UNK
     Route: 065

REACTIONS (2)
  - Intentional product misuse [Unknown]
  - Off label use [Unknown]

NARRATIVE: CASE EVENT DATE: 20181214
